FAERS Safety Report 23070952 (Version 1)
Quarter: 2023Q4

REPORT INFORMATION
  Report Type: Spontaneous
  Country: US (occurrence: US)
  Receive Date: 20231016
  Receipt Date: 20231016
  Transmission Date: 20240110
  Serious: No
  Sender: FDA-Public Use
  Company Number: US-PFIZER INC-PV202300168720

PATIENT

DRUGS (3)
  1. ESTRADIOL [Suspect]
     Active Substance: ESTRADIOL
     Dosage: UNK
  2. ESTRACE [Suspect]
     Active Substance: ESTRADIOL
     Dosage: UNK
  3. ESTROGENS [Suspect]
     Active Substance: ESTROGENS
     Dosage: UNK

REACTIONS (3)
  - Drug hypersensitivity [Unknown]
  - Burning sensation [Unknown]
  - Hypoacusis [Unknown]
